FAERS Safety Report 9596625 (Version 2)
Quarter: 2014Q2

REPORT INFORMATION
  Report Type: Spontaneous
  Country: US (occurrence: US)
  Receive Date: 20131004
  Receipt Date: 20140422
  Transmission Date: 20141212
  Serious: Yes (Hospitalization)
  Sender: FDA-Public Use
  Company Number: US-BAYER-2013-120433

PATIENT
  Age: 30 Year
  Sex: Female

DRUGS (7)
  1. YAZ [Suspect]
     Indication: DYSMENORRHOEA
  2. YASMIN [Suspect]
  3. OCELLA [Suspect]
  4. GIANVI [Suspect]
  5. XANAX [Concomitant]
     Dosage: 0.5 MG, TID
     Route: 048
     Dates: start: 20100819
  6. ZOLOFT [Concomitant]
     Dosage: 10 MG, DAILY
     Route: 048
     Dates: start: 20100819
  7. ZIRTEC [Concomitant]
     Dosage: 10 MG, DAILY
     Route: 048
     Dates: start: 20100819

REACTIONS (5)
  - Pulmonary embolism [None]
  - Injury [None]
  - Pain [None]
  - Emotional distress [None]
  - Pain [None]
